FAERS Safety Report 6892117-7 (Version None)
Quarter: 2010Q3

REPORT INFORMATION
  Report Type: 
  Country: None (occurrence: None)
  Receive Date: 20100731
  Receipt Date: 20080206
  Transmission Date: 20110219
  Serious: No
  Sender: FDA-Public Use
  Company Number: US-PFIZER INC-2008011989

PATIENT
  Sex: Male

DRUGS (4)
  1. NORVASC [Suspect]
     Dates: start: 20071101
  2. CADUET [Suspect]
     Dates: start: 20071101
  3. TRICOR [Concomitant]
  4. CELEBREX [Concomitant]

REACTIONS (2)
  - BACK PAIN [None]
  - OEDEMA PERIPHERAL [None]
